FAERS Safety Report 5019611-8 (Version None)
Quarter: 2006Q2

REPORT INFORMATION
  Report Type: 
  Country: None (occurrence: None)
  Receive Date: 20060601
  Receipt Date: 20060522
  Transmission Date: 20061013
  Serious: No
  Sender: FDA-Public Use
  Company Number: 163-21880-06040791

PATIENT
  Age: 88 Year
  Sex: Male

DRUGS (1)
  1. REVLIMID [Suspect]
     Indication: MYELODYSPLASTIC SYNDROME
     Dosage: 10 MG, QD, ORAL
     Route: 048
     Dates: start: 20060210, end: 20060201

REACTIONS (2)
  - ANAEMIA [None]
  - BLOOD IRON INCREASED [None]
